FAERS Safety Report 8828349 (Version 1)
Quarter: 2012Q4

REPORT INFORMATION
  Report Type: 
  Country: US (occurrence: US)
  Receive Date: 20121005
  Receipt Date: 20121005
  Transmission Date: 20130627
  Serious: No
  Sender: FDA-Public Use
  Company Number: US-PFIZER INC-2012245551

PATIENT
  Age: 91 Year
  Sex: Female

DRUGS (7)
  1. LIDOCAINE HCL [Suspect]
  2. AMLODIPINE BESILATE [Suspect]
  3. CODEINE [Suspect]
  4. SIMVASTATIN [Suspect]
  5. THIMEROSAL [Suspect]
  6. TAMOXIFEN [Suspect]
  7. CAMPHOR [Suspect]

REACTIONS (2)
  - Drug hypersensitivity [Unknown]
  - Food allergy [Unknown]
